FAERS Safety Report 14163757 (Version 1)
Quarter: 2017Q4

REPORT INFORMATION
  Report Type: Spontaneous
  Country: US (occurrence: US)
  Receive Date: 20171107
  Receipt Date: 20171107
  Transmission Date: 20180321
  Serious: No
  Sender: FDA-Public Use
  Company Number: US-ASTRAZENECA-2017SF10533

PATIENT
  Age: 77 Year
  Sex: Male
  Weight: 80.7 kg

DRUGS (8)
  1. OMEPRAZOLE. [Suspect]
     Active Substance: OMEPRAZOLE
     Route: 048
  2. CARBIDOPA-LEVODPA [Concomitant]
  3. SEROQUEL [Suspect]
     Active Substance: QUETIAPINE FUMARATE
     Indication: PRODUCT USED FOR UNKNOWN INDICATION
     Route: 048
  4. EXELON PATCH [Concomitant]
     Active Substance: RIVASTIGMINE
  5. ADVIL [Concomitant]
     Active Substance: IBUPROFEN
  6. MIRALAX [Concomitant]
     Active Substance: POLYETHYLENE GLYCOL 3350
  7. METOPROLOL. [Suspect]
     Active Substance: METOPROLOL
     Route: 065
  8. COLACE [Concomitant]
     Active Substance: DOCUSATE SODIUM

REACTIONS (2)
  - Feeling abnormal [Unknown]
  - Somnolence [Unknown]
